FAERS Safety Report 8359905-1 (Version None)
Quarter: 2012Q2

REPORT INFORMATION
  Report Type: 
  Country: None (occurrence: None)
  Receive Date: 20120515
  Receipt Date: 20120508
  Transmission Date: 20120825
  Serious: Yes (Death)
  Sender: FDA-Public Use
  Company Number: IE-PFIZER INC-2012111805

PATIENT
  Age: 78 Year
  Sex: Female

DRUGS (9)
  1. TOVIAZ [Suspect]
     Dosage: UNK
     Dates: start: 20090101
  2. DIAMICRON [Concomitant]
  3. BUMETANIDE [Concomitant]
  4. CLAVIX AS [Concomitant]
  5. LIPITOR [Concomitant]
  6. GLUCOPHAGE [Concomitant]
  7. RAMIPRIL [Concomitant]
  8. ACETYLSALICYLIC ACID [Concomitant]
  9. BUDESONIDE [Concomitant]

REACTIONS (1)
  - CARDIAC DISORDER [None]
